FAERS Safety Report 7633701-2 (Version None)
Quarter: 2011Q3

REPORT INFORMATION
  Report Type: 
  Country: None (occurrence: None)
  Receive Date: 20110725
  Receipt Date: 20110721
  Transmission Date: 20111222
  Serious: Yes (Other)
  Sender: FDA-Public Use
  Company Number: ZA-SANOFI-AVENTIS-2011SA046502

PATIENT
  Sex: Female

DRUGS (2)
  1. KETEK [Suspect]
     Route: 048
  2. SULFASALAZINE [Concomitant]
     Route: 065

REACTIONS (1)
  - CONVULSION [None]
